FAERS Safety Report 25945655 (Version 3)
Quarter: 2025Q4

REPORT INFORMATION
  Report Type: Report from Study
  Country: EU (occurrence: None)
  Receive Date: 20251021
  Receipt Date: 20251121
  Transmission Date: 20260117
  Serious: Yes (Other)
  Sender: UCB
  Company Number: EU-UCBSA-2025065228

PATIENT
  Age: 42 Year
  Weight: 90 kg

DRUGS (1)
  1. BIMEKIZUMAB [Suspect]
     Active Substance: BIMEKIZUMAB
     Indication: Hidradenitis
     Dosage: 320 MILLIGRAM, EV 2 WEEKS(QOW)

REACTIONS (3)
  - Oral mucosal blistering [Not Recovered/Not Resolved]
  - Weight increased [Not Recovered/Not Resolved]
  - Helicobacter infection [Not Recovered/Not Resolved]
